FAERS Safety Report 4846340-3 (Version None)
Quarter: 2005Q4

REPORT INFORMATION
  Report Type: 
  Country: None (occurrence: None)
  Receive Date: 20051206
  Receipt Date: 20051111
  Transmission Date: 20060501
  Serious: Yes (Other)
  Sender: FDA-Public Use
  Company Number: JP-SANOFI-SYNTHELABO-A01200507912

PATIENT
  Age: 812 Month
  Sex: Male
  Weight: 54.4 kg

DRUGS (4)
  1. MYSLEE [Suspect]
     Indication: DRUG USE FOR UNKNOWN INDICATION
     Route: 048
     Dates: start: 20051109, end: 20051109
  2. ADALAT [Interacting]
     Dosage: 10 MG
     Route: 048
     Dates: start: 20051109, end: 20051109
  3. FLOMOX [Concomitant]
     Indication: DRUG USE FOR UNKNOWN INDICATION
     Route: 048
     Dates: start: 20051109, end: 20051111
  4. MYDRIN P [Concomitant]
     Dosage: UNK
     Route: 031
     Dates: start: 20051109

REACTIONS (3)
  - DELIRIUM [None]
  - DRUG INTERACTION [None]
  - MEMORY IMPAIRMENT [None]
